FAERS Safety Report 24919396 (Version 3)
Quarter: 2025Q3

REPORT INFORMATION
  Report Type: Report from Study
  Country: GB (occurrence: GB)
  Receive Date: 20250204
  Receipt Date: 20250809
  Transmission Date: 20251020
  Serious: Yes (Other)
  Sender: ALEXION PHARMACEUTICALS
  Company Number: GB-AstraZeneca-CH-00795785A

PATIENT
  Age: 80 Year
  Sex: Female

DRUGS (1)
  1. BENRALIZUMAB [Suspect]
     Active Substance: BENRALIZUMAB
     Indication: Asthma

REACTIONS (5)
  - Diabetes mellitus [Unknown]
  - Dyspnoea [Unknown]
  - Cough [Unknown]
  - Burning sensation [Unknown]
  - Pain in extremity [Unknown]
